FAERS Safety Report 5203435-2 (Version None)
Quarter: 2007Q1

REPORT INFORMATION
  Report Type: 
  Country: None (occurrence: None)
  Receive Date: 20070105
  Receipt Date: 20061222
  Transmission Date: 20070707
  Serious: Yes (Congenital Anomaly)
  Sender: FDA-Public Use
  Company Number: 2006AL004055

PATIENT
  Sex: Female

DRUGS (3)
  1. OXAZEPAM [Suspect]
     Dosage: 15 MG; BID; TRPL
     Route: 064
     Dates: start: 20061001, end: 20061206
  2. CLEMASTINE FUMARATE [Concomitant]
  3. SERTRALINE [Concomitant]

REACTIONS (4)
  - CHONDROPATHY [None]
  - CONGENITAL ACROCHORDON [None]
  - CONGENITAL ANOMALY [None]
  - DRUG EXPOSURE DURING PREGNANCY [None]
